FAERS Safety Report 8163736-5 (Version None)
Quarter: 2012Q1

REPORT INFORMATION
  Report Type: 
  Country: None (occurrence: None)
  Receive Date: 20120224
  Receipt Date: 20120215
  Transmission Date: 20120608
  Serious: Yes (Other)
  Sender: FDA-Public Use
  Company Number: FR-JNJFOC-20120111128

PATIENT
  Age: 48 Year
  Sex: Male
  Weight: 75 kg

DRUGS (6)
  1. REMICADE [Suspect]
     Dosage: DOSE: 400 (UNITS UNSPECIFIED)
     Route: 042
     Dates: start: 20120101
  2. REMICADE [Suspect]
     Dosage: DOSE: 400 (UNITS UNSPECIFIED)
     Route: 042
     Dates: start: 20110701
  3. REMICADE [Suspect]
     Dosage: DOSE: 400 (UNITS UNSPECIFIED)
     Route: 042
     Dates: start: 20110501
  4. REMICADE [Suspect]
     Dosage: DOSE: 400 (UNITS UNSPECIFIED)
     Route: 042
     Dates: start: 20110601
  5. REMICADE [Suspect]
     Indication: COLITIS ULCERATIVE
     Dosage: DOSE: 400 (UNITS UNSPECIFIED)
     Route: 042
     Dates: start: 20110901
  6. REMICADE [Suspect]
     Dosage: DOSE: 400 (UNITS UNSPECIFIED)
     Route: 042
     Dates: start: 20111101

REACTIONS (1)
  - TENDONITIS [None]
